FAERS Safety Report 8904202 (Version 9)
Quarter: 2013Q2

REPORT INFORMATION
  Report Type: Report from Study
  Country: DE (occurrence: DE)
  Receive Date: 20121112
  Receipt Date: 20130520
  Transmission Date: 20140414
  Serious: Yes (Hospitalization)
  Sender: FDA-Public Use
  Company Number: DE-ABBOTT-12P-062-1004338-00

PATIENT
  Age: 69 Year
  Sex: Male
  Weight: 81.7 kg

DRUGS (1)
  1. EPROSARTAN [Suspect]
     Indication: ESSENTIAL HYPERTENSION
     Route: 048
     Dates: start: 20121001, end: 20130103

REACTIONS (1)
  - Meniscal degeneration [Recovered/Resolved]
